FAERS Safety Report 26091296 (Version 1)
Quarter: 2025Q4

REPORT INFORMATION
  Report Type: Spontaneous
  Country: US (occurrence: None)
  Receive Date: 20251126
  Receipt Date: 20251126
  Transmission Date: 20260118
  Serious: Yes (Hospitalization, Other)
  Sender: APOTEX
  Company Number: US-APOTEX-2025AP033094

PATIENT

DRUGS (3)
  1. ATORVASTATIN [Suspect]
     Active Substance: ATORVASTATIN
     Indication: Product used for unknown indication
     Dosage: UNK
     Route: 065
  2. AZATHIOPRINE [Concomitant]
     Active Substance: AZATHIOPRINE
     Indication: Polymyositis
     Dosage: UNK
     Route: 065
  3. PREDNISONE [Concomitant]
     Active Substance: PREDNISONE
     Indication: Polymyositis
     Dosage: UNK
     Route: 065

REACTIONS (1)
  - Immune-mediated myositis [Recovering/Resolving]
